FAERS Safety Report 7267336-0 (Version None)
Quarter: 2011Q1

REPORT INFORMATION
  Report Type: 
  Country: None (occurrence: None)
  Receive Date: 20110201
  Receipt Date: 20100310
  Transmission Date: 20110831
  Serious: No
  Sender: FDA-Public Use
  Company Number: A0849491A

PATIENT
  Age: 47 Year
  Sex: Female

DRUGS (2)
  1. ARIXTRA [Suspect]
     Indication: DEEP VEIN THROMBOSIS
     Dosage: 7.5MG PER DAY
     Route: 058
     Dates: start: 20100301
  2. BYSTOLIC [Concomitant]

REACTIONS (1)
  - HEADACHE [None]
